FAERS Safety Report 13051602 (Version 1)
Quarter: 2016Q4

REPORT INFORMATION
  Report Type: Report from Study
  Country: US (occurrence: US)
  Receive Date: 20161221
  Receipt Date: 20161221
  Transmission Date: 20170207
  Serious: Yes (Other)
  Sender: FDA-Public Use
  Company Number: US-PFIZER INC-2016591059

PATIENT
  Age: 46 Year
  Sex: Male

DRUGS (5)
  1. ENBREL [Interacting]
     Active Substance: ETANERCEPT
     Indication: RHEUMATOID ARTHRITIS
     Dosage: 50 MG, UNK
     Dates: start: 2016, end: 2016
  2. DEXTROAMPHET SACCHARAT, AMPHET ASPARTATE, DEXTROAMPHET SULFATE AND AMPHET SULFAT [Concomitant]
     Active Substance: AMPHETAMINE ASPARTATE\AMPHETAMINE SULFATE\DEXTROAMPHETAMINE SACCHARATE\DEXTROAMPHETAMINE SULFATE
     Indication: ATTENTION DEFICIT/HYPERACTIVITY DISORDER
     Dosage: UNK
  3. OMEPRAZOLE. [Interacting]
     Active Substance: OMEPRAZOLE
     Indication: DYSPEPSIA
     Dosage: 40 MG, UNK (20 MG IN THE MORNING AND 20 MG IN THE AFTERNOON)
  4. ENBREL [Interacting]
     Active Substance: ETANERCEPT
     Dosage: 50 MG, UNK
     Dates: start: 2016
  5. METHOTREXATE SODIUM. [Suspect]
     Active Substance: METHOTREXATE SODIUM
     Dosage: UNK
     Dates: start: 2015, end: 2016

REACTIONS (7)
  - Lethargy [Unknown]
  - Drug interaction [Unknown]
  - Fatigue [Unknown]
  - Vision blurred [Unknown]
  - Skin reaction [Unknown]
  - Rheumatoid arthritis [Unknown]
  - Dizziness [Unknown]

NARRATIVE: CASE EVENT DATE: 2016
